FAERS Safety Report 8988510 (Version 2)
Quarter: 2013Q1

REPORT INFORMATION
  Report Type: Spontaneous
  Country: GB (occurrence: None)
  Receive Date: 20121218
  Receipt Date: 20130131
  Transmission Date: 20140127
  Serious: Yes (Other)
  Sender: FDA-Public Use
  Company Number: HRA-CDB20120319

PATIENT
  Age: 36 Year
  Sex: Female

DRUGS (2)
  1. ELLAONE [Suspect]
     Indication: CONTRACEPTION
     Dates: start: 20120913, end: 20120913
  2. ELLAONE [Suspect]
     Indication: EMERGENCY CARE
     Dates: start: 20120913, end: 20120913

REACTIONS (2)
  - Pregnancy test positive [None]
  - Pregnancy on oral contraceptive [None]
